FAERS Safety Report 9841286 (Version 1)
Quarter: 2014Q1

REPORT INFORMATION
  Report Type: Spontaneous
  Country: DE (occurrence: DE)
  Receive Date: 20140124
  Receipt Date: 20140124
  Transmission Date: 20141002
  Serious: Yes (Hospitalization, Other)
  Sender: FDA-Public Use
  Company Number: PHHY2014DE007434

PATIENT
  Age: 49 Year
  Sex: Female
  Weight: 30.4 kg

DRUGS (5)
  1. RIFAMPICIN [Suspect]
     Indication: PULMONARY TUBERCULOSIS
     Route: 048
  2. ISONIAZID [Suspect]
     Indication: PULMONARY TUBERCULOSIS
     Route: 048
  3. ETHAMBUTOL [Suspect]
     Indication: PULMONARY TUBERCULOSIS
     Route: 048
  4. PYRAZINAMIDE [Suspect]
     Indication: PULMONARY TUBERCULOSIS
     Route: 048
  5. TOLVAPTAN [Interacting]

REACTIONS (11)
  - Inappropriate antidiuretic hormone secretion [Recovering/Resolving]
  - Hyponatraemia [Recovering/Resolving]
  - Blood osmolarity decreased [Recovering/Resolving]
  - Urine sodium decreased [Recovering/Resolving]
  - Hyperaldosteronism [Recovering/Resolving]
  - Hypokalaemia [Recovering/Resolving]
  - Blood aldosterone increased [Recovering/Resolving]
  - Renin increased [Recovering/Resolving]
  - Pulmonary tuberculosis [Recovering/Resolving]
  - Drug interaction [Unknown]
  - Treatment failure [Unknown]
